FAERS Safety Report 7288969-1 (Version None)
Quarter: 2011Q1

REPORT INFORMATION
  Report Type: 
  Country: None (occurrence: None)
  Receive Date: 20110211
  Receipt Date: 20110202
  Transmission Date: 20110831
  Serious: Yes (Other)
  Sender: FDA-Public Use
  Company Number: JP-JNJFOC-20110107437

PATIENT
  Sex: Female
  Weight: 54 kg

DRUGS (11)
  1. REMICADE [Suspect]
     Route: 042
  2. REMICADE [Suspect]
     Route: 042
  3. TAKEPRON [Concomitant]
     Indication: REFLUX OESOPHAGITIS
     Route: 048
  4. RIKKUNSHI-TO [Concomitant]
     Indication: GASTRITIS
     Route: 048
  5. REMICADE [Suspect]
     Indication: CROHN'S DISEASE
     Route: 042
  6. REMICADE [Suspect]
     Route: 042
  7. REMICADE [Suspect]
     Route: 042
  8. CEREKINON [Concomitant]
     Indication: GASTRITIS
     Route: 048
  9. ALLELOCK [Concomitant]
     Indication: RHINITIS ALLERGIC
     Route: 048
  10. REMICADE [Suspect]
     Dosage: 7TH INFUSION
     Route: 042
  11. REMICADE [Suspect]
     Dosage: 1ST INFUSION
     Route: 042

REACTIONS (1)
  - ANAL CANCER [None]
